FAERS Safety Report 14552975 (Version 4)
Quarter: 2018Q2

REPORT INFORMATION
  Report Type: Spontaneous
  Country: US (occurrence: US)
  Receive Date: 20180220
  Receipt Date: 20180413
  Transmission Date: 20180711
  Serious: Yes (Other)
  Sender: FDA-Public Use
  Company Number: US-JNJFOC-20180139298

PATIENT
  Sex: Female
  Weight: 49.9 kg

DRUGS (11)
  1. RISPERDAL CONSTA [Suspect]
     Active Substance: RISPERIDONE
     Indication: SCHIZOPHRENIA
     Route: 030
     Dates: start: 201701
  2. BENZTROPINE. [Concomitant]
     Active Substance: BENZTROPINE
     Indication: PARKINSONISM
     Route: 048
     Dates: start: 2017
  3. RISPERDAL CONSTA [Suspect]
     Active Substance: RISPERIDONE
     Indication: SCHIZOPHRENIA
     Dosage: UNSPECIFIED DOSE INCREASE
     Route: 030
  4. RISPERDAL [Suspect]
     Active Substance: RISPERIDONE
     Indication: BIPOLAR DISORDER
     Route: 048
     Dates: start: 201701
  5. TOPAMAX [Suspect]
     Active Substance: TOPIRAMATE
     Indication: PRODUCT USED FOR UNKNOWN INDICATION
     Route: 048
     Dates: start: 201701
  6. RISPERDAL [Suspect]
     Active Substance: RISPERIDONE
     Indication: SCHIZOAFFECTIVE DISORDER
     Route: 048
     Dates: start: 201701
  7. RISPERDAL CONSTA [Suspect]
     Active Substance: RISPERIDONE
     Indication: BIPOLAR DISORDER
     Route: 030
     Dates: start: 201701
  8. RISPERDAL CONSTA [Suspect]
     Active Substance: RISPERIDONE
     Indication: BIPOLAR DISORDER
     Dosage: UNSPECIFIED DOSE INCREASE
     Route: 030
  9. RISPERDAL [Suspect]
     Active Substance: RISPERIDONE
     Indication: SCHIZOPHRENIA
     Route: 048
     Dates: start: 201701
  10. RISPERDAL CONSTA [Suspect]
     Active Substance: RISPERIDONE
     Indication: SCHIZOAFFECTIVE DISORDER
     Dosage: UNSPECIFIED DOSE INCREASE
     Route: 030
  11. RISPERDAL CONSTA [Suspect]
     Active Substance: RISPERIDONE
     Indication: SCHIZOAFFECTIVE DISORDER
     Route: 030
     Dates: start: 201701

REACTIONS (12)
  - Memory impairment [Unknown]
  - Adverse event [Unknown]
  - Weight increased [Not Recovered/Not Resolved]
  - Constipation [Not Recovered/Not Resolved]
  - Hepatic failure [Not Recovered/Not Resolved]
  - Migraine [Not Recovered/Not Resolved]
  - Bone pain [Not Recovered/Not Resolved]
  - Skin disorder [Unknown]
  - Drug ineffective [Unknown]
  - Amenorrhoea [Not Recovered/Not Resolved]
  - Injection site haemorrhage [Unknown]
  - Injection site pain [Unknown]

NARRATIVE: CASE EVENT DATE: 2017
